FAERS Safety Report 8898985 (Version 1)
Quarter: 2012Q4

REPORT INFORMATION
  Report Type: 
  Country: US (occurrence: US)
  Receive Date: 20121108
  Receipt Date: 20121108
  Transmission Date: 20130627
  Serious: No
  Sender: FDA-Public Use
  Company Number: US-AMGEN-USASP2012034692

PATIENT
  Age: 64 Year
  Sex: Female
  Weight: 77.1 kg

DRUGS (20)
  1. ENBREL [Suspect]
     Indication: PRODUCT USED FOR UNKNOWN INDICATION
     Dosage: 50 mg, qwk
     Route: 058
     Dates: start: 20120414
  2. METHOTREXATE [Concomitant]
     Dosage: 2.5 mg, UNK
  3. PREDNISONE [Concomitant]
     Dosage: 5 mg, UNK
  4. ACETAMINOPHEN [Concomitant]
     Dosage: 500 mg, UNK
  5. PSEUDOPHED [Concomitant]
  6. DIPHENHYDRAMIN [Concomitant]
     Dosage: 25 mg, UNK
  7. KELP                               /01214901/ [Concomitant]
  8. NIACIN [Concomitant]
     Dosage: 125 mg, UNK
  9. FISH OIL [Concomitant]
  10. COQ10                              /00517201/ [Concomitant]
     Dosage: 100 mg, UNK
  11. CALCIUM [Concomitant]
  12. BIOTIN [Concomitant]
  13. VITAMIN C                          /00008001/ [Concomitant]
     Dosage: 500 mg, UNK
  14. MULTIVITAMIN                       /00097801/ [Concomitant]
  15. FOLIC ACID [Concomitant]
  16. NAPROXEN SOD [Concomitant]
     Dosage: 220 mg, UNK
  17. ALFALFA                            /01255601/ [Concomitant]
     Dosage: 250 mg, UNK
  18. GLUCOSAMINE + CHONDROITIN          /01430901/ [Concomitant]
     Dosage: UNK
  19. LEUCOVORIN /00566701/ [Concomitant]
  20. CALCIUM W/VIT.D3 [Concomitant]
     Dosage: 10000 IU, UNK

REACTIONS (3)
  - Laceration [Recovered/Resolved]
  - Localised infection [Recovered/Resolved]
  - Injection site pain [Recovering/Resolving]
